FAERS Safety Report 8458143 (Version 3)
Quarter: 2013Q1

REPORT INFORMATION
  Report Type: Spontaneous
  Country: TR (occurrence: TR)
  Receive Date: 20120314
  Receipt Date: 20130215
  Transmission Date: 20140127
  Serious: Yes (Hospitalization, Other)
  Sender: FDA-Public Use
  Company Number: TR-JNJFOC-20120303992

PATIENT
  Age: 13 Year
  Sex: Male
  Weight: 52 kg

DRUGS (12)
  1. CONCERTA [Suspect]
     Indication: CONDUCT DISORDER
     Route: 048
  2. CONCERTA [Suspect]
     Indication: CONDUCT DISORDER
     Route: 048
  3. CONCERTA [Suspect]
     Indication: CONDUCT DISORDER
     Route: 048
  4. CONCERTA [Suspect]
     Indication: CONDUCT DISORDER
     Route: 048
     Dates: start: 20110804
  5. CONCERTA [Suspect]
     Indication: ATTENTION DEFICIT/HYPERACTIVITY DISORDER
     Route: 048
  6. CONCERTA [Suspect]
     Indication: ATTENTION DEFICIT/HYPERACTIVITY DISORDER
     Route: 048
     Dates: start: 20110804
  7. CONCERTA [Suspect]
     Indication: ATTENTION DEFICIT/HYPERACTIVITY DISORDER
     Route: 048
  8. CONCERTA [Suspect]
     Indication: ATTENTION DEFICIT/HYPERACTIVITY DISORDER
     Route: 048
  9. SERTRALINE [Suspect]
     Indication: DEPRESSION
     Route: 065
  10. RITALIN [Suspect]
     Indication: ATTENTION DEFICIT/HYPERACTIVITY DISORDER
     Route: 065
  11. RITALIN [Suspect]
     Indication: ATTENTION DEFICIT/HYPERACTIVITY DISORDER
     Route: 065
  12. RISPERDAL [Concomitant]
     Indication: CONDUCT DISORDER
     Route: 048
     Dates: start: 20110804, end: 20120530

REACTIONS (7)
  - Suicide attempt [Recovered/Resolved]
  - Depression [Recovered/Resolved]
  - Abnormal behaviour [Recovered/Resolved]
  - Overdose [Unknown]
  - Nausea [Unknown]
  - Vomiting [Unknown]
  - Palpitations [Unknown]
